FAERS Safety Report 8951548 (Version 2)
Quarter: 2012Q4

REPORT INFORMATION
  Report Type: 
  Country: JP (occurrence: JP)
  Receive Date: 20121204
  Receipt Date: 20121227
  Transmission Date: 20130627
  Serious: Yes (Hospitalization)
  Sender: FDA-Public Use
  Company Number: JP-B.I. PHARMACEUTICALS,INC./RIDGEFIELD-2012-BI-01721NB

PATIENT
  Age: 61 Year
  Sex: Male
  Weight: 57.9 kg

DRUGS (6)
  1. PRADAXA [Suspect]
     Indication: ATRIAL FIBRILLATION
     Dosage: 150 mg
     Route: 048
     Dates: start: 20120815, end: 20120815
  2. ZYLORIC [Concomitant]
     Indication: HYPERURICAEMIA
     Dosage: 200 mg
     Route: 048
  3. LIPITOR [Concomitant]
     Indication: HYPERCHOLESTEROLAEMIA
     Dosage: 10 mg
     Route: 048
  4. SELARA [Concomitant]
     Indication: HYPERTENSION
     Dosage: 50 mg
     Route: 048
  5. PARIET [Concomitant]
     Indication: PROPHYLAXIS AGAINST GASTROINTESTINAL ULCER
     Dosage: 10 mg
     Route: 048
  6. ARTIST [Concomitant]
     Indication: HYPERTENSION
     Dosage: 5 mg
     Route: 048

REACTIONS (1)
  - Cerebral infarction [Not Recovered/Not Resolved]
